FAERS Safety Report 10399951 (Version 1)
Quarter: 2014Q3

REPORT INFORMATION
  Report Type: Spontaneous
  Country: US (occurrence: US)
  Receive Date: 20140821
  Receipt Date: 20140821
  Transmission Date: 20150326
  Serious: Yes (Death)
  Sender: FDA-Public Use
  Company Number: US-MERCK-1408USA010599

PATIENT
  Age: 82 Year
  Sex: Male

DRUGS (1)
  1. TEMODAR [Suspect]
     Active Substance: TEMOZOLOMIDE
     Indication: MALIGNANT MELANOMA
     Dosage: 380 MG/DAY 5 DAYS
     Route: 048
     Dates: start: 20140327, end: 20140331

REACTIONS (1)
  - Death [Fatal]

NARRATIVE: CASE EVENT DATE: 20140626
